FAERS Safety Report 18910398 (Version 1)
Quarter: 2021Q1

REPORT INFORMATION
  Report Type: Spontaneous
  Country: US (occurrence: US)
  Receive Date: 20210218
  Receipt Date: 20210218
  Transmission Date: 20210420
  Serious: No
  Sender: FDA-Public Use
  Company Number: US-DRREDDYS-USA/USA/21/0131770

PATIENT
  Age: 62 Year
  Sex: Male
  Weight: 67.5 kg

DRUGS (4)
  1. DARIFENACIN ER 15 MG [Concomitant]
     Indication: PRODUCT USED FOR UNKNOWN INDICATION
  2. ALPRAZOLAM 2 MG [Concomitant]
     Indication: PRODUCT USED FOR UNKNOWN INDICATION
     Dosage: TAKES HALF TABLET AT NIGHT
  3. OMEPRAZOLE DELAYED RELEASE CAPSULES 20 MG [Suspect]
     Active Substance: OMEPRAZOLE
     Indication: ABDOMINAL PAIN UPPER
     Route: 048
     Dates: start: 20210204
  4. ENALAPRIL [Concomitant]
     Active Substance: ENALAPRIL
     Indication: PRODUCT USED FOR UNKNOWN INDICATION

REACTIONS (2)
  - Dizziness [Unknown]
  - Product administration error [Unknown]
